FAERS Safety Report 16366211 (Version 3)
Quarter: 2020Q1

REPORT INFORMATION
  Report Type: Spontaneous
  Country: US (occurrence: US)
  Receive Date: 20190529
  Receipt Date: 20200325
  Transmission Date: 20200409
  Serious: No
  Sender: FDA-Public Use
  Company Number: US-MYLANLABS-2019M1046547

PATIENT
  Sex: Female

DRUGS (2)
  1. FENTANYL TRANSDERMAL SYSTEM [Suspect]
     Active Substance: FENTANYL
     Indication: PAIN
     Dosage: 100 MILLIGRAM
     Route: 062
  2. OXYCODONE                          /00045603/ [Suspect]
     Active Substance: OXYCODONE
     Indication: PAIN
     Dosage: 15 MILLIGRAM

REACTIONS (1)
  - Therapeutic product effect decreased [Not Recovered/Not Resolved]
